FAERS Safety Report 9647279 (Version 2)
Quarter: 2014Q2

REPORT INFORMATION
  Report Type: Spontaneous
  Country: US (occurrence: US)
  Receive Date: 20131027
  Receipt Date: 20140418
  Transmission Date: 20141212
  Serious: Yes (Other)
  Sender: FDA-Public Use
  Company Number: US-NAPPMUNDI-USA-2013-0106531

PATIENT
  Sex: Male

DRUGS (2)
  1. OXYCODONE HYDROCHLORIDE (SIMILAR TO NDA 22-272) [Suspect]
     Indication: BACK INJURY
     Dosage: UNKNOWN
  2. OXYCODONE HYDROCHLORIDE (SIMILAR TO NDA 22-272) [Suspect]
     Indication: NECK INJURY

REACTIONS (8)
  - Drug dependence [Unknown]
  - Drug abuse [Unknown]
  - Influenza like illness [Unknown]
  - Irritability [Unknown]
  - Activities of daily living impaired [Unknown]
  - Euphoric mood [Unknown]
  - Malaise [Unknown]
  - Drug withdrawal syndrome [Unknown]
